FAERS Safety Report 22338991 (Version 1)
Quarter: 2023Q2

REPORT INFORMATION
  Report Type: Spontaneous
  Country: US (occurrence: None)
  Receive Date: 20230517
  Receipt Date: 20230517
  Transmission Date: 20230722
  Serious: Yes (Other)
  Sender: FDA-Public Use
  Company Number: None

PATIENT
  Sex: Female

DRUGS (12)
  1. GAMUNEX-C [Suspect]
     Active Substance: HUMAN IMMUNOGLOBULIN G
     Indication: Stiff person syndrome
     Dosage: OTHER QUANTITY : 40GM/400ML;?OTHER FREQUENCY : EVERY TWO WEEKS;?
     Route: 058
     Dates: start: 20220518
  2. ACETAMINOPHEN [Concomitant]
     Active Substance: ACETAMINOPHEN
  3. AMBIEN [Concomitant]
     Active Substance: ZOLPIDEM TARTRATE
  4. DIPHENHYDRAMINE [Concomitant]
     Active Substance: DIPHENHYDRAMINE
  5. EPINEPHRINE [Concomitant]
     Active Substance: EPINEPHRINE
  6. GABAPENTIN [Concomitant]
     Active Substance: GABAPENTIN
  7. HEP LOCK SYR [Concomitant]
  8. LIDOCAINE/PRILOCAINE CRE [Concomitant]
  9. ONDANSETRON [Concomitant]
     Active Substance: ONDANSETRON
  10. sodium chloride sterile water flash [Concomitant]
  11. VALIUM [Concomitant]
     Active Substance: DIAZEPAM
  12. VITAMIN D [Concomitant]
     Active Substance: VITAMIN D NOS

REACTIONS (1)
  - Muscle spasticity [None]
